FAERS Safety Report 8255855-X (Version None)
Quarter: 2012Q2

REPORT INFORMATION
  Report Type: 
  Country: None (occurrence: None)
  Receive Date: 20120403
  Receipt Date: 20120319
  Transmission Date: 20120825
  Serious: Yes (Hospitalization, Other)
  Sender: FDA-Public Use
  Company Number: JP-ROCHE-1048683

PATIENT
  Age: 67 Year
  Sex: Male

DRUGS (1)
  1. MIRCERA [Suspect]
     Indication: NEPHROGENIC ANAEMIA
     Route: 042
     Dates: start: 20120310, end: 20120310

REACTIONS (7)
  - ERYTHEMA OF EYELID [None]
  - PRURITUS GENERALISED [None]
  - EYELID OEDEMA [None]
  - ROAD TRAFFIC ACCIDENT [None]
  - LIP SWELLING [None]
  - CHEILITIS [None]
  - LOSS OF CONSCIOUSNESS [None]
